FAERS Safety Report 8210991-9 (Version None)
Quarter: 2012Q1

REPORT INFORMATION
  Report Type: 
  Country: None (occurrence: None)
  Receive Date: 20120229
  Receipt Date: 20120215
  Transmission Date: 20120608
  Serious: Yes (Other)
  Sender: FDA-Public Use
  Company Number: CPI 2377

PATIENT
  Age: 32 Year
  Sex: Female

DRUGS (10)
  1. N-ACETYLCYSTEINE UNKNOWN MANUFACTURER [Suspect]
     Indication: OVERDOSE
     Dosage: 600 MG/DAY
  2. ERYTHROPOETIN [Concomitant]
  3. DOMPERIDONE [Concomitant]
  4. CALCIUM CARBONATE [Concomitant]
  5. FOLIC ACID [Concomitant]
  6. CAPTOPRIL [Concomitant]
  7. ATORVASTATIN [Concomitant]
  8. PREDNISONE TAB [Concomitant]
  9. SEVELAMER [Concomitant]
  10. CALCIUM ACETATE [Concomitant]

REACTIONS (2)
  - PERITONITIS BACTERIAL [None]
  - DRUG INEFFECTIVE [None]
